FAERS Safety Report 9647048 (Version 2)
Quarter: 2013Q4

REPORT INFORMATION
  Report Type: Spontaneous
  Country: US (occurrence: US)
  Receive Date: 20131027
  Receipt Date: 20131027
  Transmission Date: 20140711
  Serious: No
  Sender: FDA-Public Use
  Company Number: US-PURDUE-USA-2013-0100446

PATIENT
  Sex: Female
  Weight: 99.77 kg

DRUGS (3)
  1. OXYCODONE HCL CR TABLETS (SIMILAR TO NDA 22-272) [Suspect]
     Indication: PAIN
     Dosage: 60 MG, UNK
     Route: 048
  2. OXYCODONE HCL CR TABLETS (SIMILAR TO NDA 22-272) [Suspect]
     Dosage: 80 MG, Q12H PRN
     Route: 048
  3. TYLOX /00446701/ [Suspect]
     Indication: BREAKTHROUGH PAIN
     Dosage: UNK, PRN

REACTIONS (4)
  - General physical health deterioration [Unknown]
  - Gait disturbance [Unknown]
  - Pain [Not Recovered/Not Resolved]
  - Drug ineffective [Not Recovered/Not Resolved]
